FAERS Safety Report 24693217 (Version 1)
Quarter: 2024Q4

REPORT INFORMATION
  Report Type: Report from Study
  Country: CA (occurrence: CA)
  Receive Date: 20241203
  Receipt Date: 20241203
  Transmission Date: 20250114
  Serious: Yes (Hospitalization, Other)
  Sender: HLS THERAPEUTICS
  Company Number: CA-HLS-202402126

PATIENT
  Age: 75 Year
  Sex: Female
  Weight: 95 kg

DRUGS (7)
  1. CLOZARIL [Suspect]
     Active Substance: CLOZAPINE
     Indication: Schizophrenia
     Dosage: 300 MG EVERY BEDTIME
     Route: 048
     Dates: start: 20190107
  2. OLANZAPINE [Concomitant]
     Active Substance: OLANZAPINE
     Indication: Agitation
     Route: 060
     Dates: start: 20240824, end: 20240826
  3. OLANZAPINE [Concomitant]
     Active Substance: OLANZAPINE
     Indication: Anxiety
     Route: 060
     Dates: start: 20240824, end: 20240826
  4. OLANZAPINE [Concomitant]
     Active Substance: OLANZAPINE
     Indication: Insomnia
     Route: 060
     Dates: start: 20240824, end: 20240826
  5. OLANZAPINE [Concomitant]
     Active Substance: OLANZAPINE
     Indication: Agitation
     Dosage: SL OR SUB INJECTION
     Route: 065
     Dates: start: 20240821, end: 20240826
  6. OLANZAPINE [Concomitant]
     Active Substance: OLANZAPINE
     Indication: Anxiety
     Dosage: SL OR SUB INJECTION
     Route: 065
     Dates: start: 20240821, end: 20240826
  7. OLANZAPINE [Concomitant]
     Active Substance: OLANZAPINE
     Indication: Insomnia
     Dosage: SL OR SUB INJECTION
     Route: 065
     Dates: start: 20240821, end: 20240826

REACTIONS (6)
  - Hypercapnia [Unknown]
  - Confusional state [Recovered/Resolved]
  - Delirium [Recovered/Resolved]
  - Respiratory failure [Unknown]
  - Sedation [Recovered/Resolved]
  - Pneumonia aspiration [Unknown]

NARRATIVE: CASE EVENT DATE: 20240819
